FAERS Safety Report 9798953 (Version 1)
Quarter: 2014Q1

REPORT INFORMATION
  Report Type: Spontaneous
  Country: FR (occurrence: FR)
  Receive Date: 20140106
  Receipt Date: 20140106
  Transmission Date: 20141002
  Serious: Yes (Life-Threatening, Hospitalization)
  Sender: FDA-Public Use
  Company Number: FR-SA-2013SA136045

PATIENT
  Age: 85 Year
  Sex: Female

DRUGS (13)
  1. LOVENOX [Suspect]
     Indication: PRODUCT USED FOR UNKNOWN INDICATION
     Route: 058
     Dates: start: 20130220, end: 20130224
  2. PLAVIX [Suspect]
     Indication: PRODUCT USED FOR UNKNOWN INDICATION
     Route: 048
     Dates: end: 20130224
  3. SINTROM [Suspect]
     Indication: PRODUCT USED FOR UNKNOWN INDICATION
     Route: 048
     Dates: end: 20130224
  4. LANTUS [Concomitant]
  5. HUMALOG [Concomitant]
  6. LASILIX [Concomitant]
     Dosage: SCORED TABLET
  7. AMLODIPINE [Concomitant]
  8. BISOCE [Concomitant]
  9. TAHOR [Concomitant]
  10. SPECIAFOLDINE [Concomitant]
  11. CORTANCYL [Concomitant]
  12. TRIATEC [Concomitant]
     Dosage: SCORED TABLET
  13. DIFFU K [Concomitant]

REACTIONS (4)
  - Acute coronary syndrome [Recovered/Resolved]
  - Haematoma [Recovered/Resolved]
  - Shock haemorrhagic [Recovered/Resolved]
  - Anaemia [Recovered/Resolved]
